FAERS Safety Report 8557193-4 (Version None)
Quarter: 2012Q3

REPORT INFORMATION
  Report Type: 
  Country: None (occurrence: None)
  Receive Date: 20120801
  Receipt Date: 20120725
  Transmission Date: 20120928
  Serious: Yes (Other)
  Sender: FDA-Public Use
  Company Number: PHHY2012PL064142

PATIENT
  Age: 30 Year
  Sex: Female

DRUGS (3)
  1. KETOCONAZOLE [Interacting]
     Indication: VULVOVAGINAL MYCOTIC INFECTION
  2. BROMOCRIPTINE MESYLATE [Suspect]
     Indication: PROLACTINOMA
  3. CLARITHROMYCIN [Interacting]
     Indication: RESPIRATORY TRACT INFECTION

REACTIONS (7)
  - VOMITING [None]
  - PSYCHOMOTOR HYPERACTIVITY [None]
  - DRUG INTERACTION [None]
  - MUCOSAL DRYNESS [None]
  - ORTHOSTATIC HYPOTENSION [None]
  - CONSTIPATION [None]
  - DRUG LEVEL INCREASED [None]
